FAERS Safety Report 5609223-7 (Version None)
Quarter: 2008Q1

REPORT INFORMATION
  Report Type: 
  Country: None (occurrence: None)
  Receive Date: 20080120
  Receipt Date: 20080120
  Transmission Date: 20080703
  Serious: Yes (Other)
  Sender: FDA-Public Use
  Company Number: None

PATIENT
  Age: 80 Year
  Sex: Male
  Weight: 88.4514 kg

DRUGS (2)
  1. ELAVIL [Suspect]
     Indication: MUSCLE SPASMS
     Dosage: ONE TAB AT BEDTIME PO; 4 NIGHT
     Route: 048
  2. ELAVIL [Suspect]
     Indication: PAIN
     Dosage: ONE TAB AT BEDTIME PO; 4 NIGHT
     Route: 048

REACTIONS (2)
  - ABNORMAL DREAMS [None]
  - FEELING ABNORMAL [None]
